FAERS Safety Report 18625833 (Version 1)
Quarter: 2020Q4

REPORT INFORMATION
  Report Type: Spontaneous
  Country: US (occurrence: US)
  Receive Date: 20201216
  Receipt Date: 20201216
  Transmission Date: 20210114
  Serious: Yes (Other)
  Sender: FDA-Public Use
  Company Number: US-SA-2020SA356538

PATIENT

DRUGS (15)
  1. ACTEMRA [Concomitant]
     Active Substance: TOCILIZUMAB
  2. TIMOLOL MALEATE. [Suspect]
     Active Substance: TIMOLOL MALEATE
     Dosage: UNK
  3. SULFASALAZINE. [Suspect]
     Active Substance: SULFASALAZINE
  4. TRAZODONE HYDROCHLORIDE. [Suspect]
     Active Substance: TRAZODONE HYDROCHLORIDE
  5. NITROFURANTOIN. [Suspect]
     Active Substance: NITROFURANTOIN
  6. ROPINIROLE. [Suspect]
     Active Substance: ROPINIROLE
  7. CEFALEXIN [Suspect]
     Active Substance: CEPHALEXIN
     Dosage: UNK MG
  8. POTASSIUM CHLORIDE. [Suspect]
     Active Substance: POTASSIUM CHLORIDE
  9. SPIRONOLACTONE. [Suspect]
     Active Substance: SPIRONOLACTONE
     Dosage: UNK MG
  10. BRIMONIDINE TARTRATE. [Suspect]
     Active Substance: BRIMONIDINE TARTRATE
     Dosage: UNK
  11. GALANTAMINE HYDROBROMIDE. [Suspect]
     Active Substance: GALANTAMINE HYDROBROMIDE
  12. OMEPRAZOLE. [Suspect]
     Active Substance: OMEPRAZOLE
  13. ONDANSETRON [Suspect]
     Active Substance: ONDANSETRON
  14. ARAVA [Suspect]
     Active Substance: LEFLUNOMIDE
  15. FUROSEMIDE. [Suspect]
     Active Substance: FUROSEMIDE
     Dosage: UNK

REACTIONS (3)
  - Urinary tract infection [Unknown]
  - Dementia [Unknown]
  - Urinary retention [Unknown]
